FAERS Safety Report 16923956 (Version 2)
Quarter: 2019Q4

REPORT INFORMATION
  Report Type: Spontaneous
  Country: KR (occurrence: KR)
  Receive Date: 20191016
  Receipt Date: 20191025
  Transmission Date: 20200122
  Serious: Yes (Hospitalization, Other)
  Sender: FDA-Public Use
  Company Number: NVSC2019KR003399

PATIENT
  Age: 32 Year
  Sex: Male

DRUGS (1)
  1. SECUKINUMAB. [Suspect]
     Active Substance: SECUKINUMAB
     Indication: ANKYLOSING SPONDYLITIS
     Dosage: UNK
     Route: 065

REACTIONS (7)
  - Neck pain [Unknown]
  - Neurosyphilis [Unknown]
  - Rash [Recovered/Resolved]
  - Headache [Recovered/Resolved]
  - Deafness neurosensory [Recovered/Resolved]
  - Rash maculo-papular [Unknown]
  - Genital ulceration [Recovered/Resolved]
